FAERS Safety Report 5942102-4 (Version None)
Quarter: 2008Q4

REPORT INFORMATION
  Report Type: 
  Country: None (occurrence: None)
  Receive Date: 20081105
  Receipt Date: 20081024
  Transmission Date: 20090506
  Serious: Yes (Other)
  Sender: FDA-Public Use
  Company Number: US-JNJCH-2008023355

PATIENT
  Sex: Female
  Weight: 90.7 kg

DRUGS (1)
  1. LUDENS THROAT DROPS WILD CHERRY [Suspect]
     Indication: DRUG USE FOR UNKNOWN INDICATION
     Dosage: TEXT:1 DROP
     Route: 048

REACTIONS (9)
  - DECREASED APPETITE [None]
  - INSOMNIA [None]
  - JAW FRACTURE [None]
  - ORAL PAIN [None]
  - PAIN IN JAW [None]
  - STOMATITIS [None]
  - SWELLING FACE [None]
  - TOOTH FRACTURE [None]
  - TOOTHACHE [None]
